FAERS Safety Report 5618253-0 (Version None)
Quarter: 2008Q1

REPORT INFORMATION
  Report Type: 
  Country: None (occurrence: None)
  Receive Date: 20080207
  Receipt Date: 20080128
  Transmission Date: 20080703
  Serious: Yes (Other)
  Sender: FDA-Public Use
  Company Number: US-ROCHE-543798

PATIENT
  Age: 34 Year
  Sex: Male

DRUGS (1)
  1. TAMIFLU [Suspect]
     Route: 065

REACTIONS (6)
  - DEPRESSION [None]
  - FACE INJURY [None]
  - GINGIVAL INJURY [None]
  - LOSS OF CONSCIOUSNESS [None]
  - TOOTH DISORDER [None]
  - TOOTHACHE [None]
